FAERS Safety Report 6206730-3 (Version None)
Quarter: 2009Q2

REPORT INFORMATION
  Report Type: 
  Country: None (occurrence: None)
  Receive Date: 20090528
  Receipt Date: 20090423
  Transmission Date: 20091009
  Serious: No
  Sender: FDA-Public Use
  Company Number: US-BAYER-200911284BCC

PATIENT
  Age: 81 Year
  Sex: Male
  Weight: 79 kg

DRUGS (9)
  1. ALEVE (CAPLET) [Suspect]
     Indication: SPINAL COLUMN STENOSIS
     Dosage: UNIT DOSE: 220 MG
     Route: 048
     Dates: start: 20090101, end: 20090401
  2. ALEVE (CAPLET) [Suspect]
     Dosage: UNIT DOSE: 220 MG
     Route: 048
     Dates: start: 20090401
  3. HYZAAR [Concomitant]
     Indication: DRUG USE FOR UNKNOWN INDICATION
     Route: 065
  4. LIPITOR [Concomitant]
     Indication: DRUG USE FOR UNKNOWN INDICATION
     Route: 065
  5. TOPROL-XL [Concomitant]
     Indication: DRUG USE FOR UNKNOWN INDICATION
     Route: 065
  6. XYZAL [Concomitant]
     Indication: DRUG USE FOR UNKNOWN INDICATION
     Route: 065
  7. ASPIRIN [Concomitant]
     Indication: DRUG USE FOR UNKNOWN INDICATION
     Route: 065
  8. GLUCOSAMINE [Concomitant]
     Indication: DRUG USE FOR UNKNOWN INDICATION
     Route: 065
  9. CHONDROITIN [Concomitant]
     Indication: DRUG USE FOR UNKNOWN INDICATION
     Route: 065

REACTIONS (2)
  - SPINAL COLUMN STENOSIS [None]
  - URINARY RETENTION [None]
